FAERS Safety Report 5002666-4 (Version None)
Quarter: 2006Q2

REPORT INFORMATION
  Report Type: 
  Country: None (occurrence: None)
  Receive Date: 20060510
  Receipt Date: 20060425
  Transmission Date: 20061013
  Serious: Yes (Death)
  Sender: FDA-Public Use
  Company Number: E2020-00016-SPO-DE

PATIENT
  Age: 75 Year
  Sex: Male

DRUGS (2)
  1. ARICEPT [Suspect]
     Dosage: ORAL
     Route: 048
     Dates: end: 20051101
  2. DIURETIC             (UNSPECIFIED) [Concomitant]

REACTIONS (7)
  - CARDIAC DISORDER [None]
  - DRUG TOXICITY [None]
  - PNEUMONIA [None]
  - POISONING DELIBERATE [None]
  - SUDDEN DEATH [None]
  - VICTIM OF CRIME [None]
  - VICTIM OF HOMICIDE [None]
